FAERS Safety Report 7556825-7 (Version None)
Quarter: 2011Q2

REPORT INFORMATION
  Report Type: 
  Country: None (occurrence: None)
  Receive Date: 20110620
  Receipt Date: 20110606
  Transmission Date: 20111010
  Serious: Yes (Hospitalization)
  Sender: FDA-Public Use
  Company Number: CA-JNJFOC-20110603714

PATIENT
  Sex: Female
  Weight: 68.04 kg

DRUGS (19)
  1. MESALAMINE [Concomitant]
     Indication: PRODUCT USED FOR UNKNOWN INDICATION
     Dosage: ^2GM/60GM^ RECTAL SUSPENSION 1 DAILY AS NECESSARY
     Route: 054
  2. SIMVASTATIN [Concomitant]
     Indication: PRODUCT USED FOR UNKNOWN INDICATION
     Route: 048
  3. LYRICA [Concomitant]
     Indication: PRODUCT USED FOR UNKNOWN INDICATION
     Dosage: USED AS NECESSARY ONLY
  4. CALCIUM CARBONATE [Concomitant]
     Indication: PRODUCT USED FOR UNKNOWN INDICATION
  5. FLOVENT HFA [Concomitant]
     Indication: PRODUCT USED FOR UNKNOWN INDICATION
  6. NITROGLYCERIN SPRAY [Concomitant]
     Indication: PRODUCT USED FOR UNKNOWN INDICATION
     Dosage: USED APPROXIMATELY ONCE PER MONTH FOR (ILLEGIBLE) STERNUM
     Route: 060
  7. SYNTHROID [Concomitant]
     Indication: PRODUCT USED FOR UNKNOWN INDICATION
     Dosage: ^1/2 TAB ONCE DAILY^
     Route: 048
  8. MESALAMINE [Concomitant]
     Route: 048
  9. BROMAZEPAM [Concomitant]
     Indication: PRODUCT USED FOR UNKNOWN INDICATION
     Dosage: 1.5 MG TO 3.0 MG AT HOUR OF SLEEP
  10. MESALAMINE [Concomitant]
     Indication: PRODUCT USED FOR UNKNOWN INDICATION
     Dates: end: 20110201
  11. ASAPHEN [Concomitant]
     Indication: PRODUCT USED FOR UNKNOWN INDICATION
     Route: 048
  12. SALOFALK (5-ASA) [Concomitant]
     Indication: PRODUCT USED FOR UNKNOWN INDICATION
  13. ALBUTEROL [Concomitant]
     Indication: PRODUCT USED FOR UNKNOWN INDICATION
  14. EPINEPHRINE [Suspect]
     Indication: PRODUCT USED FOR UNKNOWN INDICATION
  15. AZATHIOPRINE [Concomitant]
     Indication: PRODUCT USED FOR UNKNOWN INDICATION
     Route: 048
  16. PROCHLORPERAZINE [Concomitant]
     Indication: PRODUCT USED FOR UNKNOWN INDICATION
     Dosage: EVERY 6 HOURS AS NECESSARY
  17. VITAMIN D [Concomitant]
     Indication: PRODUCT USED FOR UNKNOWN INDICATION
  18. MESALAMINE [Concomitant]
     Dosage: DOSAGE DECREASED FEB-2011, NEW DOSAGE UNKNOWN.
     Dates: start: 20110201
  19. REMICADE [Suspect]
     Indication: COLITIS ULCERATIVE
     Route: 042
     Dates: start: 20100401

REACTIONS (4)
  - CARDIAC ARREST [None]
  - ACUTE CORONARY SYNDROME [None]
  - ANAPHYLACTIC REACTION [None]
  - VENTRICULAR FIBRILLATION [None]
